FAERS Safety Report 6163067-9 (Version None)
Quarter: 2009Q2

REPORT INFORMATION
  Report Type: 
  Country: None (occurrence: None)
  Receive Date: 20090422
  Receipt Date: 20090416
  Transmission Date: 20091009
  Serious: Yes (Hospitalization)
  Sender: FDA-Public Use
  Company Number: US-CELGENEUS-163-21880-09041498

PATIENT
  Sex: Male

DRUGS (3)
  1. REVLIMID [Suspect]
     Indication: MULTIPLE MYELOMA
     Route: 048
     Dates: start: 20081201, end: 20090101
  2. REVLIMID [Suspect]
     Dosage: 15MG-25MG
     Route: 048
     Dates: start: 20080301, end: 20081101
  3. REVLIMID [Suspect]
     Route: 048
     Dates: start: 20081101, end: 20081201

REACTIONS (5)
  - ABDOMINAL PAIN UPPER [None]
  - ANOREXIA [None]
  - FATIGUE [None]
  - THINKING ABNORMAL [None]
  - WEIGHT DECREASED [None]
